FAERS Safety Report 9582449 (Version 1)
Quarter: 2013Q4

REPORT INFORMATION
  Report Type: Spontaneous
  Country: US (occurrence: US)
  Receive Date: 20131002
  Receipt Date: 20131002
  Transmission Date: 20140711
  Serious: No
  Sender: FDA-Public Use
  Company Number: US-AMGEN-USASP2013040484

PATIENT
  Age: 67 Year
  Sex: Female
  Weight: 68.93 kg

DRUGS (13)
  1. ENBREL [Suspect]
     Indication: PRODUCT USED FOR UNKNOWN INDICATION
     Dosage: 50 MG, QWK
     Route: 058
  2. TRUSOPT [Concomitant]
     Dosage: UNK SOLUTION
     Route: 047
  3. ISTALOL [Concomitant]
     Dosage: UNK, SOLUTION
     Route: 047
  4. NIFEDIPINE [Concomitant]
     Dosage: 60 MG, UNK, ER
  5. FOLIC ACID [Concomitant]
     Dosage: 1 MG, UNK
  6. EVISTA [Concomitant]
     Dosage: 60 MG, UNK
  7. METHOTREXATE [Concomitant]
     Dosage: 2.5 MG, UNK
  8. CENTRUM                            /02217401/ [Concomitant]
     Dosage: UNK
  9. VITAMIN D3 [Concomitant]
     Dosage: 1000 UNIT, UNK
  10. SILVER [Concomitant]
     Dosage: UNK
  11. OSTEO BI-FLEX [Concomitant]
     Dosage: 250-200, UNK
  12. BENAZEPRIL [Concomitant]
     Dosage: 5 MG, UNK
  13. ARAVA [Concomitant]
     Dosage: 10 MG, UNK

REACTIONS (1)
  - Therapeutic response decreased [Unknown]
